FAERS Safety Report 10178753 (Version 1)
Quarter: 2014Q2

REPORT INFORMATION
  Report Type: Spontaneous
  Country: US (occurrence: US)
  Receive Date: 20140519
  Receipt Date: 20140519
  Transmission Date: 20141212
  Serious: No
  Sender: FDA-Public Use
  Company Number: US-BIOGENIDEC-2014BI041327

PATIENT
  Age: 57 Year
  Sex: Male

DRUGS (1)
  1. AVONEX [Suspect]
     Indication: RELAPSING-REMITTING MULTIPLE SCLEROSIS
     Route: 030
     Dates: start: 2012

REACTIONS (3)
  - Drug dose omission [Recovered/Resolved with Sequelae]
  - Wrong technique in drug usage process [Recovered/Resolved with Sequelae]
  - Incorrect dose administered [Not Recovered/Not Resolved]
